FAERS Safety Report 5483902-7 (Version None)
Quarter: 2007Q4

REPORT INFORMATION
  Report Type: 
  Country: None (occurrence: None)
  Receive Date: 20071009
  Receipt Date: 20071009
  Transmission Date: 20080405
  Serious: Yes (Hospitalization)
  Sender: FDA-Public Use
  Company Number: None

PATIENT
  Age: 45 Year
  Sex: Male

DRUGS (2)
  1. ABACAVIR SULFATE [Suspect]
     Indication: HIV INFECTION
     Dosage: 1TAB EVERY DAY PO
     Route: 048
     Dates: start: 20060717, end: 20070924
  2. LAMIVUDINE [Suspect]

REACTIONS (1)
  - PANCREATITIS ACUTE [None]
